FAERS Safety Report 7806238-5 (Version None)
Quarter: 2011Q4

REPORT INFORMATION
  Report Type: 
  Country: None (occurrence: None)
  Receive Date: 20111011
  Receipt Date: 20110929
  Transmission Date: 20120403
  Serious: Yes (Hospitalization, Other)
  Sender: FDA-Public Use
  Company Number: US-TYCO HEALTHCARE/MALLINCKRODT-T201001640

PATIENT
  Sex: Male

DRUGS (10)
  1. LANTUS [Concomitant]
     Indication: DIABETES MELLITUS
     Dosage: UNK
     Dates: start: 20070122
  2. NOVOLIN                            /00030501/ [Concomitant]
     Indication: DIABETES MELLITUS
     Dosage: UNK
     Dates: start: 20070227, end: 20100408
  3. OMNISCAN [Suspect]
     Indication: NUCLEAR MAGNETIC RESONANCE IMAGING BRAIN
     Dosage: 20 ML, SINGLE
     Dates: start: 20061019, end: 20061019
  4. LASIX [Concomitant]
     Indication: PROPHYLAXIS
     Dosage: UNK
     Dates: start: 20070101, end: 20070701
  5. OPTIMARK [Suspect]
     Indication: NUCLEAR MAGNETIC RESONANCE IMAGING
     Dosage: 15 ML, SINGLE
     Dates: start: 20070412, end: 20070412
  6. MAGNEVIST [Suspect]
     Indication: NUCLEAR MAGNETIC RESONANCE IMAGING
     Dosage: 20 ML, SINGLE
     Dates: start: 20070725, end: 20070725
  7. COUMADIN [Concomitant]
     Indication: ANTICOAGULANT THERAPY
     Dosage: UNK
     Dates: start: 20070122
  8. NOVOLOG [Concomitant]
     Indication: DIABETES MELLITUS
     Dosage: UNK
     Dates: start: 20070122
  9. EPOGEN [Concomitant]
     Indication: ANAEMIA
     Dosage: UNK
     Dates: start: 20070101, end: 20080701
  10. OMNISCAN [Suspect]

REACTIONS (27)
  - ABASIA [None]
  - DISABILITY [None]
  - LEUKOCYTOSIS [None]
  - LETHARGY [None]
  - ARTHRALGIA [None]
  - OEDEMA PERIPHERAL [None]
  - HEART RATE INCREASED [None]
  - CELLULITIS [None]
  - HYPERSENSITIVITY [None]
  - BLOOD PRESSURE DECREASED [None]
  - INGROWING NAIL [None]
  - OFF LABEL USE [None]
  - ERECTILE DYSFUNCTION [None]
  - CYSTITIS [None]
  - INSOMNIA [None]
  - NEUROPATHIC ARTHROPATHY [None]
  - BLISTER [None]
  - NEPHROGENIC SYSTEMIC FIBROSIS [None]
  - OSTEOMYELITIS [None]
  - ASTHENIA [None]
  - COAGULATION TIME PROLONGED [None]
  - SKIN ULCER [None]
  - PAIN IN EXTREMITY [None]
  - ANAEMIA [None]
  - CHILLS [None]
  - PYREXIA [None]
  - ERYTHEMA [None]
